FAERS Safety Report 24028905 (Version 1)
Quarter: 2024Q2

REPORT INFORMATION
  Report Type: Spontaneous
  Country: CN (occurrence: CN)
  Receive Date: 20240628
  Receipt Date: 20240628
  Transmission Date: 20240716
  Serious: Yes (Hospitalization)
  Sender: FDA-Public Use
  Company Number: CN-HALEON-2183550

PATIENT
  Age: 53 Year
  Sex: Male
  Weight: 67.5 kg

DRUGS (3)
  1. IBUPROFEN [Suspect]
     Active Substance: IBUPROFEN
     Indication: Analgesic therapy
     Route: 048
     Dates: start: 20240615, end: 20240617
  2. IBUPROFEN [Suspect]
     Active Substance: IBUPROFEN
     Indication: Nausea
  3. IBUPROFEN [Suspect]
     Active Substance: IBUPROFEN
     Indication: Asthenia

REACTIONS (6)
  - Peptic ulcer haemorrhage [Recovering/Resolving]
  - Haemoglobin decreased [Recovering/Resolving]
  - Faeces discoloured [Recovering/Resolving]
  - Gastroduodenal ulcer [Recovering/Resolving]
  - Gastritis erosive [Recovering/Resolving]
  - Gastric ulcer [Recovering/Resolving]

NARRATIVE: CASE EVENT DATE: 20240617
